FAERS Safety Report 4597517-6 (Version None)
Quarter: 2005Q1

REPORT INFORMATION
  Report Type: 
  Country: None (occurrence: None)
  Receive Date: 20050303
  Receipt Date: 20050223
  Transmission Date: 20050727
  Serious: Yes (Other)
  Sender: FDA-Public Use
  Company Number: PHBS2005BE02995

PATIENT
  Age: 71 Year
  Sex: Female

DRUGS (7)
  1. ZOMETA [Suspect]
     Indication: MULTIPLE MYELOMA
     Route: 042
     Dates: start: 20030101, end: 20041201
  2. FOLIC ACID [Concomitant]
     Route: 065
  3. ASAFLOW [Concomitant]
     Route: 065
  4. ZANTAC [Concomitant]
     Route: 065
  5. FERRO-GRAD [Concomitant]
     Route: 065
  6. LORMETAZEPAM [Concomitant]
     Route: 065
  7. SOTALOL HCL [Concomitant]
     Route: 065

REACTIONS (3)
  - OSTEONECROSIS [None]
  - TOOTH EXTRACTION [None]
  - WOUND DEBRIDEMENT [None]
